FAERS Safety Report 12849258 (Version 2)
Quarter: 2016Q4

REPORT INFORMATION
  Report Type: Spontaneous
  Country: US (occurrence: US)
  Receive Date: 20161014
  Receipt Date: 20161111
  Transmission Date: 20170207
  Serious: Yes (Hospitalization, Disabling)
  Sender: FDA-Public Use
  Company Number: US-ENDO PHARMACEUTICALS INC.-2016-006213

PATIENT
  Age: 61 Year
  Sex: Male
  Weight: 85.35 kg

DRUGS (2)
  1. TESTIM [Suspect]
     Active Substance: TESTOSTERONE
     Indication: ANDROGEN REPLACEMENT THERAPY
     Route: 062
     Dates: start: 2012, end: 2013
  2. ANDROGEL [Suspect]
     Active Substance: TESTOSTERONE
     Indication: ANDROGEN REPLACEMENT THERAPY
     Route: 061
     Dates: start: 20130129

REACTIONS (3)
  - Coronary artery disease [Not Recovered/Not Resolved]
  - Treatment noncompliance [Unknown]
  - Coronary artery dissection [Unknown]

NARRATIVE: CASE EVENT DATE: 20130308
